FAERS Safety Report 5068918-7 (Version None)
Quarter: 2006Q3

REPORT INFORMATION
  Report Type: 
  Country: None (occurrence: None)
  Receive Date: 20060717
  Receipt Date: 20051229
  Transmission Date: 20061208
  Serious: Yes (Hospitalization)
  Sender: FDA-Public Use
  Company Number: 2005002469

PATIENT
  Age: 81 Year
  Sex: Male

DRUGS (8)
  1. TARCEVA [Suspect]
     Indication: LUNG ADENOCARCINOMA
     Dosage: 150 MG (QD), ORAL
     Route: 048
     Dates: start: 20051116, end: 20051220
  2. ALBUTEROL [Concomitant]
  3. ATENOLOL [Concomitant]
  4. FELODIPINE [Concomitant]
  5. FUROSEMIDE [Concomitant]
  6. LISINOPRIL [Concomitant]
  7. RANITIDINE [Concomitant]
  8. SIMVASTATIN [Concomitant]

REACTIONS (2)
  - COLONIC PSEUDO-OBSTRUCTION [None]
  - ILEUS [None]
